FAERS Safety Report 8078250-5 (Version None)
Quarter: 2012Q1

REPORT INFORMATION
  Report Type: 
  Country: None (occurrence: None)
  Receive Date: 20120127
  Receipt Date: 20110201
  Transmission Date: 20120608
  Serious: No
  Sender: FDA-Public Use
  Company Number: US-ABBOTT-10P-163-0694208-00

PATIENT
  Age: 63 Year
  Sex: Female

DRUGS (14)
  1. ACIDOPHILUS MULTI PROBIOTIC [Concomitant]
     Indication: PRODUCT USED FOR UNKNOWN INDICATION
  2. MERCAPTOTURINE 6MP [Concomitant]
     Indication: CROHN'S DISEASE
     Dosage: 25 MG DAILY
  3. OMEPRAZOLE [Concomitant]
     Indication: GASTRIC ULCER
  4. CANASSA [Concomitant]
     Indication: PRODUCT USED FOR UNKNOWN INDICATION
     Dosage: ALTERNATE NIGHTS WITH RUWASA
  5. TRAMADOL HCL [Concomitant]
     Indication: PAIN
  6. CALCIUM APPETITE PLUS [Concomitant]
     Indication: PRODUCT USED FOR UNKNOWN INDICATION
  7. CONDROITIN JOINT RELIEF FORMULA [Concomitant]
     Indication: PRODUCT USED FOR UNKNOWN INDICATION
  8. RUWASA [Concomitant]
     Indication: PRODUCT USED FOR UNKNOWN INDICATION
     Dosage: AT NIGH
  9. CITALOPRAM HYDROBROMIDE [Concomitant]
     Indication: PRODUCT USED FOR UNKNOWN INDICATION
  10. MERCAPTOTURINE 6MP [Concomitant]
     Indication: COLITIS ULCERATIVE
  11. MULTI-VITAMIN [Concomitant]
     Indication: PRODUCT USED FOR UNKNOWN INDICATION
  12. HUMIRA [Suspect]
     Indication: CROHN'S DISEASE
     Dates: start: 20090601
  13. LOVAZA [Concomitant]
     Indication: PRODUCT USED FOR UNKNOWN INDICATION
  14. HUMIRA [Suspect]
     Indication: COLITIS ULCERATIVE
     Dates: start: 20100810

REACTIONS (13)
  - MUSCULOSKELETAL CHEST PAIN [None]
  - CROHN'S DISEASE [None]
  - PSORIASIS [None]
  - GENITAL ERYTHEMA [None]
  - RASH PAPULAR [None]
  - VAGINAL MUCOSAL BLISTERING [None]
  - GENITAL RASH [None]
  - RECTAL HAEMORRHAGE [None]
  - LUNG INFECTION [None]
  - RASH [None]
  - SCAB [None]
  - DYSPNOEA [None]
  - GROIN PAIN [None]
